FAERS Safety Report 6285991-9 (Version None)
Quarter: 2009Q3

REPORT INFORMATION
  Report Type: 
  Country: None (occurrence: None)
  Receive Date: 20090728
  Receipt Date: 20090714
  Transmission Date: 20100115
  Serious: Yes (Other)
  Sender: FDA-Public Use
  Company Number: CN-JNJFOC-20081001602

PATIENT
  Age: 35 Year
  Sex: Female

DRUGS (2)
  1. GYNO DAKTARIN [Suspect]
     Route: 067
  2. GYNO DAKTARIN [Suspect]
     Indication: VAGINAL INFECTION
     Route: 067

REACTIONS (2)
  - DRUG EXPOSURE DURING PREGNANCY [None]
  - PREMATURE LABOUR [None]
